FAERS Safety Report 9447595 (Version 1)
Quarter: 2013Q3

REPORT INFORMATION
  Report Type: Spontaneous
  Country: CH (occurrence: CH)
  Receive Date: 20130808
  Receipt Date: 20130808
  Transmission Date: 20140515
  Serious: Yes (Disabling)
  Sender: FDA-Public Use
  Company Number: CH-CELGENEUS-151-21880-13073813

PATIENT
  Age: 69 Year
  Sex: Male

DRUGS (4)
  1. REVLIMID [Suspect]
     Indication: PLASMA CELL MYELOMA
     Route: 048
  2. ZOMETA [Suspect]
     Indication: PLASMA CELL MYELOMA
     Dosage: 4MG/5ML
     Route: 041
     Dates: start: 2010, end: 2012
  3. ASPIRIN CARDIO [Concomitant]
     Indication: PRODUCT USED FOR UNKNOWN INDICATION
     Route: 048
  4. STILNOX [Concomitant]
     Indication: INSOMNIA
     Route: 048

REACTIONS (1)
  - Osteonecrosis of jaw [Not Recovered/Not Resolved]
